FAERS Safety Report 6551463-7 (Version None)
Quarter: 2010Q1

REPORT INFORMATION
  Report Type: 
  Country: None (occurrence: None)
  Receive Date: 20100126
  Receipt Date: 20100113
  Transmission Date: 20100710
  Serious: No
  Sender: FDA-Public Use
  Company Number: US-ROXANE LABORATORIES, INC.-2010-RO-00036RO

PATIENT
  Age: 83 Year
  Sex: Female

DRUGS (4)
  1. MEGESTROL ACETATE [Suspect]
     Indication: INCREASED APPETITE
     Dates: start: 20100101
  2. MORPHINE [Suspect]
  3. ATIVAN [Concomitant]
  4. OXYGEN [Concomitant]

REACTIONS (1)
  - RASH [None]
